FAERS Safety Report 22392180 (Version 1)
Quarter: 2023Q2

REPORT INFORMATION
  Report Type: Spontaneous
  Country: US (occurrence: US)
  Receive Date: 20230601
  Receipt Date: 20230601
  Transmission Date: 20230722
  Serious: Yes (Other)
  Sender: FDA-Public Use
  Company Number: US-AMGEN-USASP2023092462

PATIENT
  Age: 92 Year
  Sex: Female

DRUGS (1)
  1. RITUXIMAB [Suspect]
     Active Substance: RITUXIMAB
     Indication: Extranodal marginal zone B-cell lymphoma (MALT type)
     Dosage: UNK
     Route: 065

REACTIONS (1)
  - Extranodal marginal zone B-cell lymphoma (MALT type) recurrent [Unknown]
